FAERS Safety Report 5742113-8 (Version None)
Quarter: 2008Q2

REPORT INFORMATION
  Report Type: 
  Country: None (occurrence: None)
  Receive Date: 20080514
  Receipt Date: 20070529
  Transmission Date: 20081010
  Serious: Yes (Other)
  Sender: FDA-Public Use
  Company Number: US200801004970

PATIENT
  Age: 81 Year
  Sex: Female

DRUGS (2)
  1. KEFLEX [Suspect]
     Indication: FURUNCLE
     Dates: start: 20070507, end: 20070512
  2. LENALIDOMIDE (LENALIDOMIDE) [Concomitant]

REACTIONS (1)
  - HYPERSENSITIVITY [None]
